FAERS Safety Report 6525846-5 (Version None)
Quarter: 2010Q1

REPORT INFORMATION
  Report Type: 
  Country: None (occurrence: None)
  Receive Date: 20100104
  Receipt Date: 20091222
  Transmission Date: 20100710
  Serious: Yes (Disabling)
  Sender: FDA-Public Use
  Company Number: B0620169A

PATIENT
  Sex: Male

DRUGS (11)
  1. REQUIP [Suspect]
     Indication: PARKINSON'S DISEASE
     Dosage: 2MG THREE TIMES PER DAY
     Route: 048
     Dates: start: 20081204, end: 20081217
  2. REQUIP [Suspect]
     Dosage: 2.5MG THREE TIMES PER DAY
     Route: 048
     Dates: start: 20081218, end: 20090607
  3. CARBIDOPA AND LEVODOPA [Concomitant]
     Indication: PARKINSON'S DISEASE
     Dosage: 50MG TWICE PER DAY
     Route: 048
     Dates: start: 20090603, end: 20090607
  4. SELEGILINE HCL [Concomitant]
     Indication: PARKINSON'S DISEASE
     Dosage: 2.5MG TWICE PER DAY
     Route: 048
     Dates: start: 20090603, end: 20090607
  5. ARICEPT [Concomitant]
     Indication: DEMENTIA OF THE ALZHEIMER'S TYPE, UNCOMPLICATED
     Route: 048
  6. CHINESE MEDICINE [Concomitant]
     Indication: DEMENTIA OF THE ALZHEIMER'S TYPE, UNCOMPLICATED
     Route: 048
  7. GASTER D [Concomitant]
     Indication: DEMENTIA OF THE ALZHEIMER'S TYPE, UNCOMPLICATED
     Route: 048
  8. POLYFUL [Concomitant]
     Indication: DEMENTIA OF THE ALZHEIMER'S TYPE, UNCOMPLICATED
     Route: 048
  9. SALUMOSIN [Concomitant]
     Indication: DEMENTIA OF THE ALZHEIMER'S TYPE, UNCOMPLICATED
     Route: 048
  10. LUVOX [Concomitant]
     Indication: DEMENTIA OF THE ALZHEIMER'S TYPE, UNCOMPLICATED
     Route: 048
  11. HALCION [Concomitant]
     Indication: DEMENTIA OF THE ALZHEIMER'S TYPE, UNCOMPLICATED
     Route: 048

REACTIONS (3)
  - HALLUCINATION [None]
  - IMPULSIVE BEHAVIOUR [None]
  - STUBBORNNESS [None]
